FAERS Safety Report 7373732-3 (Version None)
Quarter: 2011Q1

REPORT INFORMATION
  Report Type: 
  Country: None (occurrence: None)
  Receive Date: 20110325
  Receipt Date: 20110322
  Transmission Date: 20110831
  Serious: Yes (Hospitalization)
  Sender: FDA-Public Use
  Company Number: CA-CEPHALON-2011000126

PATIENT
  Sex: Female
  Weight: 73 kg

DRUGS (8)
  1. GLYBURIDE [Concomitant]
  2. DILTIAZEM CD [Concomitant]
     Dates: start: 19900101
  3. RAMIPRIL [Concomitant]
     Dates: start: 19900101
  4. ASPIRIN [Concomitant]
     Dates: start: 20060101
  5. LEVOTHYROXINE SODIUM [Concomitant]
     Dates: start: 19900101
  6. TREANDA [Suspect]
     Indication: MANTLE CELL LYMPHOMA
     Route: 042
     Dates: start: 20100902
  7. METFORMIN [Concomitant]
     Dates: start: 19900101
  8. RITUXIMAB [Suspect]
     Indication: MANTLE CELL LYMPHOMA
     Route: 042
     Dates: start: 20100902

REACTIONS (1)
  - INFECTION [None]
